FAERS Safety Report 5256637-3 (Version None)
Quarter: 2007Q1

REPORT INFORMATION
  Report Type: 
  Country: None (occurrence: None)
  Receive Date: 20070306
  Receipt Date: 20070228
  Transmission Date: 20070707
  Serious: Yes (Life-Threatening)
  Sender: FDA-Public Use
  Company Number: FR-PFIZER INC-2007016302

PATIENT
  Age: 49 Year
  Sex: Male

DRUGS (9)
  1. DEPO-MEDROL [Suspect]
     Route: 037
     Dates: start: 20061212, end: 20061212
  2. CYTARABINE [Suspect]
     Route: 037
  3. METHOTREXATE [Suspect]
     Route: 037
     Dates: start: 20061212, end: 20061212
  4. DOXORUBICIN HYDROCHLORIDE [Concomitant]
     Route: 042
     Dates: start: 20061211, end: 20061214
  5. VINCRISTINE SULFATE [Concomitant]
     Route: 042
     Dates: start: 20061211, end: 20061214
  6. RITUXIMAB [Concomitant]
     Route: 042
     Dates: start: 20061211, end: 20061211
  7. COTRIM [Concomitant]
  8. VALACYCLOVIR HCL [Concomitant]
  9. CHLORAMBUCIL [Concomitant]
     Indication: NON-HODGKIN'S LYMPHOMA
     Dosage: DAILY DOSE:6MG

REACTIONS (4)
  - CEREBRAL VENOUS THROMBOSIS [None]
  - GRAND MAL CONVULSION [None]
  - HAEMORRHAGE INTRACRANIAL [None]
  - HEADACHE [None]
